FAERS Safety Report 5340422-8 (Version None)
Quarter: 2007Q2

REPORT INFORMATION
  Report Type: 
  Country: None (occurrence: None)
  Receive Date: 20070405
  Receipt Date: 20061221
  Transmission Date: 20071010
  Serious: No
  Sender: FDA-Public Use
  Company Number: US200612004083

PATIENT
  Age: 56 Year
  Sex: Male

DRUGS (4)
  1. CYMBALTA [Suspect]
  2. RISPERDAL /SWE/ (RISPERIDONE) [Concomitant]
  3. XALATAN [Concomitant]
  4. PRILOSEC [Concomitant]

REACTIONS (4)
  - EYE DISORDER [None]
  - FEELING JITTERY [None]
  - HYPERVIGILANCE [None]
  - MYDRIASIS [None]
